FAERS Safety Report 15321593 (Version 1)
Quarter: 2018Q3

REPORT INFORMATION
  Report Type: Spontaneous
  Country: CA (occurrence: CA)
  Receive Date: 20180827
  Receipt Date: 20180827
  Transmission Date: 20181010
  Serious: Yes (Hospitalization, Other)
  Sender: FDA-Public Use
  Company Number: CA-IPSEN BIOPHARMACEUTICALS, INC.-2018-01716

PATIENT
  Age: 63 Year
  Sex: Male
  Weight: 96 kg

DRUGS (15)
  1. APO?WARFARIN [Concomitant]
     Active Substance: WARFARIN SODIUM
     Dosage: DAILY DOSE ALTERNATING BETWEEN 9 MG AND 10 MG
     Dates: start: 20170223
  2. OLANZAPINE. [Concomitant]
     Active Substance: OLANZAPINE
  3. SOMATULINE AUTOGEL [Suspect]
     Active Substance: LANREOTIDE ACETATE
     Indication: NEUROENDOCRINE CARCINOMA
     Dosage: 120 MG
     Route: 058
     Dates: start: 20160808
  4. IMOVAN [Concomitant]
     Active Substance: ZOPICLONE
     Dates: start: 20120105
  5. CIALIS [Concomitant]
     Active Substance: TADALAFIL
     Dosage: TWICE A DAY, AS NEEDED
     Route: 048
     Dates: start: 20151105
  6. SOMATULINE AUTOGEL [Suspect]
     Active Substance: LANREOTIDE ACETATE
     Dosage: 90 MG
     Route: 058
     Dates: start: 20151216, end: 20160807
  7. NORVASC [Concomitant]
     Active Substance: AMLODIPINE BESYLATE
     Route: 048
     Dates: start: 20140403
  8. OLESTYR [Concomitant]
     Active Substance: CHOLESTYRAMINE
     Dosage: 4G/5G
     Route: 048
     Dates: start: 20170223
  9. DEPO?MEDROL [Concomitant]
     Active Substance: METHYLPREDNISOLONE ACETATE
     Dates: start: 20140708
  10. SUPEUDOL [Concomitant]
     Active Substance: OXYCODONE HYDROCHLORIDE
     Route: 048
     Dates: start: 20170420
  11. CHAMPIX [Concomitant]
     Active Substance: VARENICLINE TARTRATE
     Dosage: 0.5 OR 1MG
     Route: 048
     Dates: start: 20170711
  12. DICLOFENAC [Concomitant]
     Active Substance: DICLOFENAC
     Route: 061
     Dates: start: 20170126
  13. TYLENOL WITH CODEINE [Concomitant]
     Active Substance: ACETAMINOPHEN\CODEINE PHOSPHATE
     Dosage: THREE TIMES A DAY, AS NEEDED
     Route: 048
     Dates: start: 20150609
  14. COVERSYL [Concomitant]
     Active Substance: PERINDOPRIL
     Route: 048
     Dates: start: 20140403
  15. WELLBUTRIN [Concomitant]
     Active Substance: BUPROPION HYDROCHLORIDE
     Route: 048
     Dates: start: 20110906

REACTIONS (3)
  - Diarrhoea [Unknown]
  - Basal cell carcinoma [Not Recovered/Not Resolved]
  - Flushing [Unknown]

NARRATIVE: CASE EVENT DATE: 20171219
